FAERS Safety Report 8113268-5 (Version None)
Quarter: 2012Q1

REPORT INFORMATION
  Report Type: 
  Country: None (occurrence: None)
  Receive Date: 20120203
  Receipt Date: 20120131
  Transmission Date: 20120608
  Serious: Yes (Other)
  Sender: FDA-Public Use
  Company Number: US-PFIZER INC-2012026587

PATIENT
  Sex: Female
  Weight: 94.785 kg

DRUGS (2)
  1. LYRICA [Suspect]
     Indication: FIBROMYALGIA
     Dosage: 200 MG, 1X/DAY
     Route: 048
     Dates: start: 20110101, end: 20120101
  2. METOPROLOL [Concomitant]
     Indication: HYPERTENSION
     Dosage: 50 MG, UNK

REACTIONS (5)
  - HEADACHE [None]
  - VISION BLURRED [None]
  - SWELLING FACE [None]
  - MUSCLE TWITCHING [None]
  - LIP DISORDER [None]
